FAERS Safety Report 8815350 (Version 1)
Quarter: 2012Q4

REPORT INFORMATION
  Report Type: 
  Country: US (occurrence: US)
  Receive Date: 20120928
  Receipt Date: 20120928
  Transmission Date: 20130627
  Serious: No
  Sender: FDA-Public Use
  Company Number: US-009507513-2012SP029576

PATIENT

DRUGS (2)
  1. COPPERTONE [Suspect]
     Indication: PRODUCT USED FOR UNKNOWN INDICATION
     Dosage: UNK UNK, Unknown
     Route: 061
  2. BANANA BOAT NOS [Suspect]
     Indication: PRODUCT USED FOR UNKNOWN INDICATION
     Dosage: UNK UNK, Unknown

REACTIONS (4)
  - Burning sensation [Unknown]
  - Erythema [Unknown]
  - Feeling abnormal [Unknown]
  - Wrong technique in drug usage process [Unknown]
